FAERS Safety Report 10872381 (Version 3)
Quarter: 2015Q2

REPORT INFORMATION
  Report Type: Report from Study
  Country: US (occurrence: US)
  Receive Date: 20150226
  Receipt Date: 20150518
  Transmission Date: 20150821
  Serious: Yes (Hospitalization, Other)
  Sender: FDA-Public Use
  Company Number: US-BRISTOL-MYERS SQUIBB COMPANY-BMS-2015-010469

PATIENT
  Age: 70 Year
  Sex: Male

DRUGS (2)
  1. DEGARELIX [Concomitant]
     Active Substance: DEGARELIX
     Indication: PROSTATE CANCER
     Dosage: 240 MG, UNK
     Route: 058
     Dates: start: 20150206
  2. IPILIMUMAB [Suspect]
     Active Substance: IPILIMUMAB
     Indication: PROSTATE CANCER
     Dosage: 10 MG/KG, Q3WK
     Route: 042
     Dates: start: 20150109

REACTIONS (7)
  - Hypertension [Not Recovered/Not Resolved]
  - Haemorrhage intracranial [Unknown]
  - Diarrhoea [Not Recovered/Not Resolved]
  - Vomiting [Not Recovered/Not Resolved]
  - Nausea [Not Recovered/Not Resolved]
  - Headache [Not Recovered/Not Resolved]
  - Rash pustular [Unknown]

NARRATIVE: CASE EVENT DATE: 20150212
